FAERS Safety Report 4764595-0 (Version None)
Quarter: 2005Q3

REPORT INFORMATION
  Report Type: 
  Country: None (occurrence: None)
  Receive Date: 20050909
  Receipt Date: 20050901
  Transmission Date: 20060218
  Serious: Yes (Death, Hospitalization)
  Sender: FDA-Public Use
  Company Number: 200512927FR

PATIENT
  Age: 58 Year
  Sex: Female
  Weight: 56 kg

DRUGS (5)
  1. TARGOCID [Suspect]
     Route: 042
     Dates: start: 20050612, end: 20050630
  2. LOVENOX [Suspect]
     Route: 058
     Dates: end: 20050629
  3. CIFLOX [Suspect]
     Route: 042
     Dates: start: 20050612, end: 20050630
  4. TIENAM [Suspect]
     Route: 042
     Dates: start: 20050612, end: 20050630
  5. CANCIDAS [Suspect]
     Route: 042
     Dates: start: 20050612, end: 20050623

REACTIONS (4)
  - COAGULOPATHY [None]
  - HISTIOCYTOSIS HAEMATOPHAGIC [None]
  - RESPIRATORY FAILURE [None]
  - THROMBOCYTOPENIA [None]
